FAERS Safety Report 10516840 (Version 3)
Quarter: 2015Q3

REPORT INFORMATION
  Report Type: Spontaneous
  Country: US (occurrence: US)
  Receive Date: 20141014
  Receipt Date: 20150722
  Transmission Date: 20151125
  Serious: Yes (Hospitalization)
  Sender: FDA-Public Use
  Company Number: US-BAYER-2014-151071

PATIENT
  Age: 18 Year
  Sex: Female
  Weight: 56.69 kg

DRUGS (1)
  1. MIRENA [Suspect]
     Active Substance: LEVONORGESTREL
     Indication: CONTRACEPTION
     Dosage: 20 MCG/24HR, CONT
     Route: 015
     Dates: start: 20070501, end: 20070921

REACTIONS (11)
  - Procedural pain [Not Recovered/Not Resolved]
  - Pelvic discomfort [None]
  - Depression [None]
  - Anxiety [None]
  - Post procedural discomfort [Not Recovered/Not Resolved]
  - Injury [None]
  - Pelvic pain [None]
  - Emotional distress [None]
  - Device dislocation [None]
  - Uterine perforation [None]
  - Emotional distress [None]

NARRATIVE: CASE EVENT DATE: 20070501
